FAERS Safety Report 19065655 (Version 1)
Quarter: 2021Q1

REPORT INFORMATION
  Report Type: Spontaneous
  Country: CN (occurrence: CN)
  Receive Date: 20210327
  Receipt Date: 20210327
  Transmission Date: 20210420
  Serious: Yes (Other)
  Sender: FDA-Public Use
  Company Number: CN-ACCORD-220260

PATIENT
  Age: 32 Year
  Sex: Male

DRUGS (3)
  1. OXALIPLATIN. [Suspect]
     Active Substance: OXALIPLATIN
     Indication: ADENOCARCINOMA OF COLON
     Dosage: FOR 8 CYCLES
     Dates: start: 2017
  2. FLUOROURACIL. [Suspect]
     Active Substance: FLUOROURACIL
     Indication: ADENOCARCINOMA OF COLON
     Dosage: FOR 8 CYCLES
     Dates: start: 2017
  3. CETUXIMAB. [Suspect]
     Active Substance: CETUXIMAB
     Indication: ADENOCARCINOMA OF COLON
     Dosage: 500 MG/KG Q14D; FOR 8 CYCLES
     Dates: start: 2017

REACTIONS (1)
  - Leukopenia [Unknown]

NARRATIVE: CASE EVENT DATE: 2017
